FAERS Safety Report 5212428-0 (Version None)
Quarter: 2006Q4

REPORT INFORMATION
  Report Type: 
  Country: None (occurrence: None)
  Receive Date: 20061130
  Receipt Date: 20060525
  Transmission Date: 20070319
  Serious: Yes (Other)
  Sender: FDA-Public Use
  Company Number: WAES 0605USA04777

PATIENT
  Age: 70 Year
  Sex: Female

DRUGS (2)
  1. FOSAMAX [Suspect]
     Dosage: PO
     Route: 048
  2. BONIVA [Suspect]
     Indication: OSTEOPOROSIS
     Dates: start: 20060201, end: 20060501

REACTIONS (1)
  - OSTEONECROSIS [None]
